FAERS Safety Report 8302237-8 (Version None)
Quarter: 2012Q2

REPORT INFORMATION
  Report Type: 
  Country: None (occurrence: None)
  Receive Date: 20120420
  Receipt Date: 20120409
  Transmission Date: 20120825
  Serious: Yes (Other)
  Sender: FDA-Public Use
  Company Number: TW-BRISTOL-MYERS SQUIBB COMPANY-16508830

PATIENT
  Age: 60 Year
  Sex: Female

DRUGS (4)
  1. METHOTREXATE [Suspect]
     Indication: GESTATIONAL TROPHOBLASTIC TUMOUR
     Dates: start: 19821101
  2. ETOPOSIDE [Suspect]
     Indication: GESTATIONAL TROPHOBLASTIC TUMOUR
     Dosage: 100MG/D FOR 5 DAYS CUMULATIVE DOSE 3000MG
     Route: 042
     Dates: start: 19821101
  3. MERCAPTOPURINE [Suspect]
     Indication: GESTATIONAL TROPHOBLASTIC TUMOUR
     Dates: start: 19821101
  4. DACTINOMYCIN [Suspect]
     Indication: GESTATIONAL TROPHOBLASTIC TUMOUR
     Route: 042
     Dates: start: 19821101

REACTIONS (1)
  - VAGINAL CANCER [None]
